FAERS Safety Report 20972803 (Version 2)
Quarter: 2022Q3

REPORT INFORMATION
  Report Type: Spontaneous
  Country: US (occurrence: US)
  Receive Date: 20220617
  Receipt Date: 20220707
  Transmission Date: 20221026
  Serious: No
  Sender: FDA-Public Use
  Company Number: US-AMGEN-USASP2022100753

PATIENT
  Age: 77 Year
  Sex: Female
  Weight: 58.957 kg

DRUGS (1)
  1. PROLIA [Suspect]
     Active Substance: DENOSUMAB
     Indication: Osteoporosis postmenopausal
     Dosage: 40 MILLIGRAM PER MILLILITER
     Route: 065
     Dates: start: 2014

REACTIONS (2)
  - Accidental exposure to product [Unknown]
  - Wrong technique in product usage process [Unknown]

NARRATIVE: CASE EVENT DATE: 20220609
